FAERS Safety Report 5780389-1 (Version None)
Quarter: 2008Q2

REPORT INFORMATION
  Report Type: 
  Country: None (occurrence: None)
  Receive Date: 20080620
  Receipt Date: 20080611
  Transmission Date: 20081010
  Serious: Yes (Other)
  Sender: FDA-Public Use
  Company Number: DE-SOLVAY-00308002626

PATIENT
  Sex: Female

DRUGS (1)
  1. PANKREON GRANULAT [Suspect]
     Indication: DRUG USE FOR UNKNOWN INDICATION
     Dosage: DAILY DOSE:  UNKNOWN
     Route: 065
     Dates: start: 19910101

REACTIONS (2)
  - LEUKOPLAKIA [None]
  - LIP AND/OR ORAL CAVITY CANCER [None]
